FAERS Safety Report 5826663-1 (Version None)
Quarter: 2008Q3

REPORT INFORMATION
  Report Type: 
  Country: None (occurrence: None)
  Receive Date: 20080730
  Receipt Date: 20080721
  Transmission Date: 20090109
  Serious: Yes (Other)
  Sender: FDA-Public Use
  Company Number: US-JNJFOC-20080705649

PATIENT
  Sex: Female
  Weight: 14.97 kg

DRUGS (3)
  1. POLYCITRA SYRUP [Suspect]
     Indication: CONGENITAL ANOMALY
     Route: 048
  2. POLYCITRA LC [Suspect]
     Indication: CONGENITAL ANOMALY
     Route: 048
  3. ZINC SULFATE [Concomitant]
     Indication: CONGENITAL ANOMALY
     Route: 042

REACTIONS (6)
  - BLOOD BICARBONATE DECREASED [None]
  - BLOOD GLUCOSE INCREASED [None]
  - BLOOD POTASSIUM INCREASED [None]
  - DIARRHOEA [None]
  - HEART RATE INCREASED [None]
  - IRRITABILITY [None]
